FAERS Safety Report 16477347 (Version 1)
Quarter: 2019Q2

REPORT INFORMATION
  Report Type: Spontaneous
  Country: JP (occurrence: JP)
  Receive Date: 20190626
  Receipt Date: 20190626
  Transmission Date: 20190711
  Serious: Yes (Death)
  Sender: FDA-Public Use
  Company Number: JP-AUROBINDO-AUR-APL-2019-037291

PATIENT

DRUGS (2)
  1. PRALATREXATE INJECTION [Suspect]
     Active Substance: PRALATREXATE
     Indication: CUTANEOUS T-CELL LYMPHOMA
     Dosage: 30 MG/M2, WEEKLY
     Route: 042
  2. LEUCOVORIN. [Concomitant]
     Active Substance: LEUCOVORIN
     Indication: PROPHYLAXIS
     Route: 042

REACTIONS (1)
  - Influenza [Fatal]
